FAERS Safety Report 9224332 (Version 3)
Quarter: 2013Q4

REPORT INFORMATION
  Report Type: Report from Study
  Country: BR (occurrence: BR)
  Receive Date: 20130411
  Receipt Date: 20131022
  Transmission Date: 20140711
  Serious: Yes (Other)
  Sender: FDA-Public Use
  Company Number: PHHY2013BR034942

PATIENT
  Sex: Female
  Weight: 50 kg

DRUGS (4)
  1. ACLASTA [Suspect]
     Indication: OSTEOPOROSIS
     Dosage: 5 MG/100 ML, UNK
     Route: 042
     Dates: start: 2013
  2. CAPTORIL [Concomitant]
     Dosage: UNK UKN, UNK
  3. HYDROCHLOROTHIAZIDE [Concomitant]
     Dosage: UNK UKN, UNK
  4. FIXICAL [Concomitant]
     Dosage: UNK UKN, UNK

REACTIONS (1)
  - Foot fracture [Not Recovered/Not Resolved]
